FAERS Safety Report 7754095-8 (Version None)
Quarter: 2011Q3

REPORT INFORMATION
  Report Type: 
  Country: None (occurrence: None)
  Receive Date: 20110915
  Receipt Date: 20110906
  Transmission Date: 20111222
  Serious: No
  Sender: FDA-Public Use
  Company Number: JP-SANOFI-AVENTIS-2011SA049329

PATIENT
  Age: 63 Year
  Sex: Male
  Weight: 59 kg

DRUGS (6)
  1. BASEN [Concomitant]
     Route: 048
     Dates: start: 20030312, end: 20090223
  2. AMARYL [Suspect]
     Route: 048
     Dates: start: 20110629, end: 20110801
  3. AMARYL [Suspect]
     Indication: DIABETES MELLITUS
     Route: 048
     Dates: start: 20030310, end: 20070611
  4. AMARYL [Suspect]
     Route: 048
     Dates: start: 20070612, end: 20110516
  5. BASEN [Concomitant]
     Route: 048
     Dates: start: 20090224
  6. KINEDAK [Concomitant]
     Indication: DIABETIC NEUROPATHY
     Route: 048
     Dates: start: 20030312, end: 20090525

REACTIONS (1)
  - HYPOAESTHESIA [None]
